FAERS Safety Report 6967554-2 (Version None)
Quarter: 2010Q3

REPORT INFORMATION
  Report Type: 
  Country: None (occurrence: None)
  Receive Date: 20100823
  Receipt Date: 20100715
  Transmission Date: 20110219
  Serious: No
  Sender: FDA-Public Use
  Company Number: 014158

PATIENT
  Sex: Female
  Weight: 56.5 kg

DRUGS (11)
  1. CIMZIA [Suspect]
     Indication: CROHN'S DISEASE
     Dosage: (DOSE SUBCUTANEOUS)
     Route: 058
     Dates: start: 20091231, end: 20100326
  2. ASACOL [Concomitant]
  3. FERROUS CLUCONATE [Concomitant]
  4. MULTIVITAMIN /01229101/ [Concomitant]
  5. PAROXETINE HCL [Concomitant]
  6. TYLENOL ACHES AND STRAINS MEDICATION [Concomitant]
  7. XANAX [Concomitant]
  8. RELAFEN [Concomitant]
  9. PREDNISONE [Concomitant]
  10. IMODIUM /01493801/ [Concomitant]
  11. ENTOCORT EC [Concomitant]

REACTIONS (4)
  - HYPERHIDROSIS [None]
  - PAIN [None]
  - PYREXIA [None]
  - VULVOVAGINAL MYCOTIC INFECTION [None]
